FAERS Safety Report 4626852-8 (Version None)
Quarter: 2005Q1

REPORT INFORMATION
  Report Type: 
  Country: None (occurrence: None)
  Receive Date: 20050331
  Receipt Date: 20050318
  Transmission Date: 20050727
  Serious: Yes (Hospitalization, Other)
  Sender: FDA-Public Use
  Company Number: 202864

PATIENT
  Age: 63 Year
  Sex: Female
  Weight: 46.2669 kg

DRUGS (8)
  1. AVONEX [Suspect]
     Indication: MULTIPLE SCLEROSIS
     Dosage: 30 UG; QW; IM
     Route: 030
     Dates: start: 19990910, end: 20040101
  2. AVONEX [Suspect]
     Indication: MULTIPLE SCLEROSIS
     Dosage: 30 UG;QW; IM
     Route: 030
     Dates: start: 20040101
  3. CLONAZEPAM [Concomitant]
  4. PAXIL [Concomitant]
  5. PREMPRO [Concomitant]
  6. HORMONE REPLACEMENT (NOS) [Concomitant]
  7. VITAMIN [Concomitant]
  8. GRAPE SEED EXTRACT [Concomitant]

REACTIONS (10)
  - ARTHRALGIA [None]
  - BALANCE DISORDER [None]
  - BREAST CANCER FEMALE [None]
  - DISEASE PROGRESSION [None]
  - FALL [None]
  - FIBROCYSTIC BREAST DISEASE [None]
  - HYPERAESTHESIA [None]
  - IMMUNE SYSTEM DISORDER [None]
  - INFLUENZA LIKE ILLNESS [None]
  - MULTIPLE SCLEROSIS [None]
